FAERS Safety Report 7306908-1 (Version None)
Quarter: 2011Q1

REPORT INFORMATION
  Report Type: 
  Country: None (occurrence: None)
  Receive Date: 20110223
  Receipt Date: 20110208
  Transmission Date: 20110831
  Serious: No
  Sender: FDA-Public Use
  Company Number: US-BIOGENIDEC-2010BI008403

PATIENT
  Sex: Male

DRUGS (2)
  1. ALLERGY MEDICATION [Concomitant]
  2. TYSABRI [Suspect]
     Indication: MULTIPLE SCLEROSIS
     Route: 042
     Dates: start: 20100215

REACTIONS (4)
  - FATIGUE [None]
  - DIZZINESS [None]
  - MEMORY IMPAIRMENT [None]
  - SOMNOLENCE [None]
